FAERS Safety Report 5178940-8 (Version None)
Quarter: 2006Q4

REPORT INFORMATION
  Report Type: 
  Country: None (occurrence: None)
  Receive Date: 20061219
  Receipt Date: 20061208
  Transmission Date: 20070319
  Serious: Yes (Death, Hospitalization)
  Sender: FDA-Public Use
  Company Number: CA-JNJFOC-20061102782

PATIENT
  Sex: Female
  Weight: 74 kg

DRUGS (20)
  1. REMICADE [Suspect]
     Indication: RHEUMATOID ARTHRITIS
     Route: 042
  2. CORDARONE [Suspect]
     Indication: TACHYCARDIA
     Route: 048
  3. TRAMACET [Suspect]
     Indication: SPINAL COLUMN STENOSIS
     Route: 048
  4. DURAGESIC-100 [Concomitant]
     Indication: SPINAL COLUMN STENOSIS
  5. ELAVIL [Concomitant]
     Indication: SLEEP DISORDER
     Route: 048
  6. CALCIUM [Concomitant]
     Indication: NUTRITIONAL SUPPORT
     Route: 048
  7. VITAMIN D [Concomitant]
     Indication: NUTRITIONAL SUPPORT
     Route: 048
  8. FOSAMAX [Concomitant]
     Indication: OSTEOPOROSIS
     Route: 048
  9. SERAX [Concomitant]
     Indication: SLEEP DISORDER
     Route: 048
  10. XALATAN [Concomitant]
     Indication: GLAUCOMA
     Route: 047
  11. COMBIGEN [Concomitant]
     Indication: GLAUCOMA
     Route: 047
  12. DILAUDID [Concomitant]
     Indication: SPINAL COLUMN STENOSIS
     Route: 048
  13. TIAZAC [Concomitant]
     Indication: HYPERTENSION
     Route: 048
  14. ATACAND [Concomitant]
     Indication: HYPERTENSION
     Route: 048
  15. IMDUR [Concomitant]
     Indication: ANGINA PECTORIS
     Route: 048
  16. COUMADIN [Concomitant]
     Indication: ARRHYTHMIA
     Route: 048
  17. NITROLINGUAL [Concomitant]
     Indication: ANGINA PECTORIS
     Route: 048
  18. PREDNISONE TAB [Concomitant]
     Indication: RHEUMATOID ARTHRITIS
     Route: 048
  19. LOSEC [Concomitant]
     Indication: DYSPEPSIA
     Route: 048
  20. NEURONTIN [Concomitant]
     Indication: SPINAL COLUMN STENOSIS
     Route: 048

REACTIONS (4)
  - ACUTE PULMONARY OEDEMA [None]
  - CYSTITIS [None]
  - HEPATITIS [None]
  - SEPSIS [None]
